FAERS Safety Report 11677068 (Version 1)
Quarter: 2015Q4

REPORT INFORMATION
  Report Type: Spontaneous
  Country: GB (occurrence: GB)
  Receive Date: 20151028
  Receipt Date: 20151028
  Transmission Date: 20160304
  Serious: Yes (Other)
  Sender: FDA-Public Use
  Company Number: GB-FRESENIUS KABI-FK201505358

PATIENT
  Age: 64 Year
  Sex: Female
  Weight: 73.02 kg

DRUGS (5)
  1. SERTRALINE [Concomitant]
     Active Substance: SERTRALINE HYDROCHLORIDE
  2. OMEPRAZOLE. [Concomitant]
     Active Substance: OMEPRAZOLE
  3. LETROZOLE (MANUFACTURER UNKNOWN) [Suspect]
     Active Substance: LETROZOLE
     Indication: BREAST CANCER
     Route: 048
     Dates: start: 201206
  4. PROPRANOLOL [Concomitant]
     Active Substance: PROPRANOLOL\PROPRANOLOL HYDROCHLORIDE
  5. MEBEVERINE [Concomitant]
     Active Substance: MEBEVERINE

REACTIONS (22)
  - Nail disorder [Unknown]
  - Pain in extremity [Unknown]
  - Weight bearing difficulty [Unknown]
  - Arthralgia [Not Recovered/Not Resolved]
  - Musculoskeletal pain [Unknown]
  - Headache [Not Recovered/Not Resolved]
  - Pruritus [Unknown]
  - Joint lock [Unknown]
  - Dry eye [Not Recovered/Not Resolved]
  - Alopecia [Unknown]
  - Muscular weakness [Unknown]
  - Hot flush [Not Recovered/Not Resolved]
  - Myalgia [Not Recovered/Not Resolved]
  - Insomnia [Not Recovered/Not Resolved]
  - Hair texture abnormal [Unknown]
  - Musculoskeletal stiffness [Not Recovered/Not Resolved]
  - Apathy [Unknown]
  - Fatigue [Not Recovered/Not Resolved]
  - Irritability [Unknown]
  - Nausea [Not Recovered/Not Resolved]
  - Vision blurred [Unknown]
  - Back pain [Unknown]

NARRATIVE: CASE EVENT DATE: 2012
